FAERS Safety Report 11076208 (Version 1)
Quarter: 2015Q2

REPORT INFORMATION
  Report Type: Report from Study
  Country: GB (occurrence: GB)
  Receive Date: 20150429
  Receipt Date: 20150429
  Transmission Date: 20150821
  Serious: Yes (Other)
  Sender: FDA-Public Use
  Company Number: GB-JNJFOC-20141112463

PATIENT
  Age: 55 Year
  Sex: Female

DRUGS (1)
  1. STELARA [Suspect]
     Active Substance: USTEKINUMAB
     Indication: PSORIASIS
     Route: 058
     Dates: start: 2014

REACTIONS (5)
  - Weight decreased [Unknown]
  - Anaemia [Recovering/Resolving]
  - Malaise [Recovering/Resolving]
  - Deep vein thrombosis [Unknown]
  - Hyperplasia [Recovering/Resolving]

NARRATIVE: CASE EVENT DATE: 201406
